FAERS Safety Report 14786286 (Version 12)
Quarter: 2020Q3

REPORT INFORMATION
  Report Type: Spontaneous
  Country: PL (occurrence: PL)
  Receive Date: 20180420
  Receipt Date: 20200902
  Transmission Date: 20201102
  Serious: Yes (Hospitalization, Other)
  Sender: FDA-Public Use
  Company Number: PL-MYLANLABS-2018M1025882

PATIENT
  Age: 37 Year
  Sex: Female

DRUGS (83)
  1. TORASEMIDE [Suspect]
     Active Substance: TORSEMIDE
     Dosage: UNK
     Route: 065
  2. METHYLDOPA. [Suspect]
     Active Substance: METHYLDOPA
     Dosage: 03 DOSAGE FORM (1 DF TID)
     Dates: start: 20150301
  3. ERYTHROPOIETIN [Suspect]
     Active Substance: ERYTHROPOIETIN
     Dosage: AFTER EACH DIALYSIS
     Route: 058
  4. ERYTHROPOIETIN [Suspect]
     Active Substance: ERYTHROPOIETIN
     Dosage: 4000 INTERNATIONAL UNIT, QW, (AFTER EACH DIALYSIS)
     Route: 058
  5. FERINJECT [Suspect]
     Active Substance: FERRIC CARBOXYMALTOSE
     Dosage: 50 MILLIGRAM
     Route: 042
     Dates: start: 201408
  6. IRON DEXTRAN [Suspect]
     Active Substance: IRON DEXTRAN
     Indication: PRODUCT USED FOR UNKNOWN INDICATION
     Dosage: UNK
  7. IRON DEXTRAN [Suspect]
     Active Substance: IRON DEXTRAN
     Dosage: UNK
     Route: 042
     Dates: start: 201808
  8. MALTOFER                           /00023548/ [Suspect]
     Active Substance: IRON POLYMALTOSE
     Dosage: 100 MILLIGRAM
     Route: 048
     Dates: start: 201503
  9. ALFACALCIDOL [Suspect]
     Active Substance: ALFACALCIDOL
     Indication: HYPERPARATHYROIDISM
     Dosage: 0.25 MICROGRAM, QD (0.25 ?G, QD)
     Route: 065
  10. SIMVASTATIN. [Suspect]
     Active Substance: SIMVASTATIN
     Dosage: 25 MILLIGRAM
  11. IRON SUCROSE [Suspect]
     Active Substance: IRON SUCROSE
     Dosage: UNK
     Route: 042
     Dates: start: 201408
  12. CEFUROXIME. [Suspect]
     Active Substance: CEFUROXIME
     Dosage: UNK
     Route: 065
  13. HEPARIN [Suspect]
     Active Substance: HEPARIN SODIUM
     Indication: ANTICOAGULANT THERAPY
     Dosage: UNK
     Route: 065
  14. SPIRAMYCIN [Suspect]
     Active Substance: SPIRAMYCIN
     Indication: TOXOPLASMOSIS
     Dosage: UNK
     Route: 065
     Dates: start: 20150501
  15. ERYTHROPOIETIN [Suspect]
     Active Substance: ERYTHROPOIETIN
     Indication: PRODUCT USED FOR UNKNOWN INDICATION
     Dosage: 4000 IU, QW
     Route: 058
     Dates: start: 20150801
  16. ERYTHROPOIETIN [Suspect]
     Active Substance: ERYTHROPOIETIN
     Dosage: 2000 INTERNATIONAL UNIT (AFTER EACH DIALYSIS)
     Route: 058
  17. ERYTHROPOIETIN [Suspect]
     Active Substance: ERYTHROPOIETIN
     Dosage: UNK
  18. SACCHARATED IRON OXIDE [Suspect]
     Active Substance: IRON SUCROSE
     Indication: PRODUCT USED FOR UNKNOWN INDICATION
     Dosage: 100 MILLIGRAM, UNK
     Route: 042
     Dates: start: 201408
  19. IRON DEXTRAN [Suspect]
     Active Substance: IRON DEXTRAN
     Dosage: UNK
     Route: 048
     Dates: start: 201503
  20. MALTOFER                           /00023548/ [Suspect]
     Active Substance: IRON POLYMALTOSE
     Dosage: 100 MILLIGRAM, QW
     Route: 065
  21. VENOFER [Suspect]
     Active Substance: IRON SUCROSE
     Indication: PRODUCT USED FOR UNKNOWN INDICATION
     Dosage: 100 MILLIGRAM
     Route: 048
     Dates: start: 201408
  22. VENOFER [Suspect]
     Active Substance: IRON SUCROSE
     Dosage: UNK
     Route: 048
     Dates: start: 201503
  23. TORASEMIDE [Suspect]
     Active Substance: TORSEMIDE
     Indication: HYPERTENSION
     Dosage: 2.5 MG, QD
     Route: 065
  24. ERYTHROPOIETIN [Suspect]
     Active Substance: ERYTHROPOIETIN
     Dosage: AFTER EACH DIALYSIS
  25. FERINJECT [Suspect]
     Active Substance: FERRIC CARBOXYMALTOSE
     Dosage: 100 MG
     Route: 042
     Dates: start: 201408, end: 201408
  26. MALTOFER                           /00023548/ [Suspect]
     Active Substance: IRON POLYMALTOSE
     Dosage: 100 MILLIGRAM, QW
     Route: 048
     Dates: start: 201408
  27. VITAMIN D3 [Concomitant]
     Active Substance: CHOLECALCIFEROL
     Indication: PRODUCT USED FOR UNKNOWN INDICATION
     Dosage: UNK
     Route: 065
  28. METHYLDOPA. [Suspect]
     Active Substance: METHYLDOPA
     Dosage: 1 DF, QD, 3 X 1 TABLET
     Route: 065
     Dates: start: 20150301
  29. EPOETIN BETA [Suspect]
     Active Substance: ERYTHROPOIETIN
     Indication: PRODUCT USED FOR UNKNOWN INDICATION
     Dosage: 2000 INTERNATIONAL UNIT
     Route: 058
  30. VENOFER [Suspect]
     Active Substance: IRON SUCROSE
     Indication: PRODUCT USED FOR UNKNOWN INDICATION
     Dosage: 100 MG
     Route: 042
     Dates: start: 201408
  31. VENOFER [Suspect]
     Active Substance: IRON SUCROSE
     Dosage: UNK
     Route: 048
     Dates: start: 201503
  32. SPIRAMYCIN [Suspect]
     Active Substance: SPIRAMYCIN
     Indication: CYSTITIS
     Dosage: UNK
     Route: 065
     Dates: start: 201505
  33. SPIRAMYCIN [Suspect]
     Active Substance: SPIRAMYCIN
     Dosage: UNK, (AFTER EACH DIALYSIS)
     Route: 065
  34. FOLIC ACID. [Suspect]
     Active Substance: FOLIC ACID
     Indication: PRODUCT USED FOR UNKNOWN INDICATION
     Dosage: 15 MILLIGRAM, QD
     Route: 042
     Dates: start: 20150301
  35. FOLIC ACID. [Suspect]
     Active Substance: FOLIC ACID
     Dosage: 15 MILLIGRAM
     Route: 048
     Dates: start: 201503
  36. MALTOFER                           /00023548/ [Suspect]
     Active Substance: IRON POLYMALTOSE
     Indication: PRODUCT USED FOR UNKNOWN INDICATION
     Dosage: UNK
     Route: 048
     Dates: start: 201503, end: 201503
  37. FERACCRU [Suspect]
     Active Substance: FERRIC MALTOL
     Indication: PRODUCT USED FOR UNKNOWN INDICATION
     Dosage: UNK
     Route: 065
     Dates: start: 201503
  38. RISEDRONIC ACID [Concomitant]
     Active Substance: RISEDRONIC ACID
     Indication: PRODUCT USED FOR UNKNOWN INDICATION
     Dosage: UNK
     Route: 065
  39. SIMVASTATIN. [Suspect]
     Active Substance: SIMVASTATIN
     Indication: HYPERCHOLESTEROLAEMIA
     Dosage: 20 MG, QW
     Route: 065
  40. IRON SUCROSE [Suspect]
     Active Substance: IRON SUCROSE
     Dosage: 100 MG, QW
     Route: 048
     Dates: start: 201408
  41. CEFUROXIME. [Suspect]
     Active Substance: CEFUROXIME
     Indication: CYSTITIS
     Dosage: UNK
     Route: 065
     Dates: start: 20150501
  42. LEVOTHYROXINE. [Suspect]
     Active Substance: LEVOTHYROXINE
     Dosage: 25 MICROGRAM, QD(25 MCG/ML)
     Route: 065
     Dates: start: 201505
  43. ACETYLSALICYLIC ACID [Suspect]
     Active Substance: ASPIRIN
     Indication: PROPHYLAXIS
     Dosage: 75 MG, QD
     Route: 048
     Dates: start: 201503
  44. EPOETIN BETA [Suspect]
     Active Substance: ERYTHROPOIETIN
     Dosage: UNK
     Route: 065
  45. VENOFER [Suspect]
     Active Substance: IRON SUCROSE
     Dosage: 100 MG, QW
     Route: 042
  46. VENOFER [Suspect]
     Active Substance: IRON SUCROSE
     Dosage: 100 MILLIGRAM
     Route: 042
  47. ERYTHROPOIETIN [Suspect]
     Active Substance: ERYTHROPOIETIN
     Dosage: 4000 INTERNATIONAL UNIT, QW
     Route: 058
     Dates: start: 201508
  48. FERINJECT [Suspect]
     Active Substance: FERRIC CARBOXYMALTOSE
     Dosage: 50 MILLIGRAM
     Route: 065
     Dates: start: 201408
  49. IRON DEXTRAN [Suspect]
     Active Substance: IRON DEXTRAN
     Dosage: 100 MILLIGRAM, QW
     Route: 042
     Dates: start: 201408
  50. IRON DEXTRAN [Suspect]
     Active Substance: IRON DEXTRAN
     Dosage: 100 MILLIGRAM, QW
     Route: 042
     Dates: start: 201503
  51. IRON DEXTRAN [Suspect]
     Active Substance: IRON DEXTRAN
     Indication: PRODUCT USED FOR UNKNOWN INDICATION
     Dosage: UNK
  52. MALTOFER                           /00023548/ [Suspect]
     Active Substance: IRON POLYMALTOSE
     Dosage: 100 MILLIGRAM, QW
     Route: 048
     Dates: start: 201503
  53. ASCORBIC ACID. [Concomitant]
     Active Substance: ASCORBIC ACID
     Dosage: UNK
     Route: 048
  54. IRON SUCROSE [Suspect]
     Active Substance: IRON SUCROSE
     Dosage: 100 MILLIGRAM
     Route: 048
     Dates: start: 201408
  55. LEVOTHYROXINE. [Suspect]
     Active Substance: LEVOTHYROXINE
     Indication: HYPOTHYROIDISM
     Dosage: 25 MICROGRAM
     Route: 065
  56. LEVOTHYROXINE. [Suspect]
     Active Substance: LEVOTHYROXINE
     Dosage: 25 MICROGRAM, QD
     Route: 065
     Dates: start: 20150501
  57. EPOETIN BETA [Suspect]
     Active Substance: ERYTHROPOIETIN
     Dosage: UNK
     Route: 065
  58. EPOETIN BETA [Suspect]
     Active Substance: ERYTHROPOIETIN
     Dosage: 2000 INTERNATIONAL UNIT (2000 U))
     Route: 058
  59. FERINJECT [Suspect]
     Active Substance: FERRIC CARBOXYMALTOSE
     Dosage: 50 MG/ML
     Route: 042
  60. FERINJECT [Suspect]
     Active Substance: FERRIC CARBOXYMALTOSE
     Dosage: 50 MILLIGRAM
     Route: 042
  61. IRON DEXTRAN [Suspect]
     Active Substance: IRON DEXTRAN
     Dosage: 100 MILLIGRAM, QW
     Route: 048
     Dates: start: 201408
  62. COLECALCIFEROL W/RISEDRONIC ACID [Concomitant]
     Indication: PRODUCT USED FOR UNKNOWN INDICATION
     Dosage: UNK
     Route: 065
  63. IRON SUCROSE [Suspect]
     Active Substance: IRON SUCROSE
     Indication: PRODUCT USED FOR UNKNOWN INDICATION
     Dosage: 100 MILLIGRAM, QW
     Route: 042
  64. METHYLDOPA. [Suspect]
     Active Substance: METHYLDOPA
     Dosage: 3 DOSAGE FORM, QD (1 DF TID)
     Route: 065
     Dates: start: 20150501
  65. EPOETIN BETA [Suspect]
     Active Substance: ERYTHROPOIETIN
     Dosage: 2000 INTERNATIONAL UNIT, QW, AFTER EACH DIALYSIS
     Route: 058
  66. EPOETIN BETA [Suspect]
     Active Substance: ERYTHROPOIETIN
     Dosage: UNK, QW AFTER EACH DIALYSIS
     Route: 058
  67. FOLIC ACID. [Suspect]
     Active Substance: FOLIC ACID
     Indication: PRODUCT USED FOR UNKNOWN INDICATION
     Dosage: 15 MG, QD
     Route: 048
  68. FOLIC ACID. [Suspect]
     Active Substance: FOLIC ACID
     Dosage: 15 MILLIGRAM, QD
     Route: 048
     Dates: start: 20150301
  69. FERACCRU [Suspect]
     Active Substance: FERRIC MALTOL
     Dosage: UNK
     Route: 065
  70. COLECALCIFEROL [Concomitant]
     Active Substance: CHOLECALCIFEROL
     Indication: PRODUCT USED FOR UNKNOWN INDICATION
     Dosage: UNK
     Route: 065
  71. ASCORBIC ACID. [Concomitant]
     Active Substance: ASCORBIC ACID
     Indication: PRODUCT USED FOR UNKNOWN INDICATION
     Dosage: UNK, QD, (AFTER EACH DIALYSIS)
     Route: 048
     Dates: start: 201503
  72. SIMVASTATIN. [Suspect]
     Active Substance: SIMVASTATIN
     Dosage: 20 MILLIGRAM
     Route: 065
     Dates: start: 2015, end: 2015
  73. IRON SUCROSE [Suspect]
     Active Substance: IRON SUCROSE
     Indication: PRODUCT USED FOR UNKNOWN INDICATION
     Dosage: 100 MILLIGRAM, QW
     Route: 048
  74. IRON SUCROSE [Suspect]
     Active Substance: IRON SUCROSE
     Dosage: UNK
     Route: 048
     Dates: start: 201503
  75. CEFUROXIME. [Suspect]
     Active Substance: CEFUROXIME
     Dosage: UNK
     Route: 065
     Dates: start: 201505
  76. METHYLDOPA. [Suspect]
     Active Substance: METHYLDOPA
     Indication: HYPERTENSION
     Dosage: 1 MICROGRAM PER LITRE(3 X 1 TABLET)
     Route: 065
  77. METHYLDOPA. [Suspect]
     Active Substance: METHYLDOPA
     Dosage: 3 DOSAGE FORM, QD (1 DF, TID)
     Route: 065
     Dates: start: 201503
  78. ACETYLSALICYLIC ACID [Suspect]
     Active Substance: ASPIRIN
     Indication: TOXOPLASMOSIS
     Dosage: 75 MILLIGRAM, QD
     Route: 048
     Dates: start: 20150301
  79. ACETYLSALICYLIC ACID [Suspect]
     Active Substance: ASPIRIN
     Dosage: 75 MILLIGRAM
     Route: 048
     Dates: start: 20150301
  80. EPOETIN BETA [Suspect]
     Active Substance: ERYTHROPOIETIN
     Dosage: 2000 INTERNATIONAL UNIT, QW, AFTER EACH DIALYSIS
     Route: 058
  81. EPOETIN BETA [Suspect]
     Active Substance: ERYTHROPOIETIN
     Dosage: 4000 INTERNATIONAL UNIT, QW AFTER EACH DIALYSIS
     Route: 058
     Dates: start: 201508
  82. EPOETIN BETA [Suspect]
     Active Substance: ERYTHROPOIETIN
     Dosage: 2000 INTERNATIONAL UNIT, QW AFTER EACH DIALYSIS
     Route: 058
  83. FERINJECT [Suspect]
     Active Substance: FERRIC CARBOXYMALTOSE
     Indication: PRODUCT USED FOR UNKNOWN INDICATION
     Dosage: 100 MILLIGRAM, UNK
     Route: 042

REACTIONS (14)
  - Blood albumin decreased [Unknown]
  - Maternal exposure during pregnancy [Recovered/Resolved]
  - Off label use [Unknown]
  - Haemoglobin decreased [Unknown]
  - Live birth [Recovered/Resolved]
  - Toxoplasmosis [Unknown]
  - Premature rupture of membranes [Unknown]
  - Cystitis [Unknown]
  - Oedema peripheral [Unknown]
  - Haematocrit decreased [Unknown]
  - No adverse event [Unknown]
  - Hypothyroidism [Unknown]
  - Premature delivery [Recovered/Resolved]
  - Contraindicated product administered [Unknown]

NARRATIVE: CASE EVENT DATE: 201505
